FAERS Safety Report 14738589 (Version 1)
Quarter: 2018Q2

REPORT INFORMATION
  Report Type: Spontaneous
  Country: JP (occurrence: JP)
  Receive Date: 20180409
  Receipt Date: 20180409
  Transmission Date: 20180711
  Serious: Yes (Disabling, Other)
  Sender: FDA-Public Use
  Company Number: JP-PFIZER INC-2017550394

PATIENT
  Age: 47 Year
  Sex: Male

DRUGS (1)
  1. CHAMPIX [Suspect]
     Active Substance: VARENICLINE TARTRATE
     Indication: SMOKING CESSATION THERAPY
     Dosage: UNK
     Route: 048
     Dates: start: 20170907, end: 20171016

REACTIONS (5)
  - Visual acuity reduced [Unknown]
  - Irritability [Unknown]
  - Diabetes mellitus [Unknown]
  - Depressive symptom [Unknown]
  - Anxiety [Unknown]

NARRATIVE: CASE EVENT DATE: 20171111
